FAERS Safety Report 12613800 (Version 10)
Quarter: 2017Q1

REPORT INFORMATION
  Report Type: Spontaneous
  Country: US (occurrence: US)
  Receive Date: 20160802
  Receipt Date: 20170301
  Transmission Date: 20170428
  Serious: Yes (Hospitalization, Other)
  Sender: FDA-Public Use
  Company Number: US-PFIZER INC-2016332771

PATIENT
  Age: 65 Year
  Sex: Female
  Weight: 87 kg

DRUGS (17)
  1. IBRANCE [Suspect]
     Active Substance: PALBOCICLIB
     Dosage: 125 MG, DAILY, CYCLIC (21 DAYS THEN/7 DAYS OFF)
     Route: 048
     Dates: start: 20160622
  2. IBRANCE [Suspect]
     Active Substance: PALBOCICLIB
     Dosage: 125 MG, 1X/DAY
     Dates: start: 20160624
  3. VIT B-6 [Concomitant]
     Dosage: UNK
  4. IBRANCE [Suspect]
     Active Substance: PALBOCICLIB
     Dosage: 125 MG, DAILY, CYCLIC (21 DAYS ON/7 DAYS OFF)
     Route: 048
     Dates: start: 20160621
  5. IBRANCE [Suspect]
     Active Substance: PALBOCICLIB
     Dosage: 125 MG, CYCLIC (1 CAPSULE EVERY DAY FOR 21 DAYS ON AND THEN TAKE 7 DAYS OFF)
     Dates: start: 20160817, end: 20161126
  6. COENZYME Q10 [Concomitant]
     Active Substance: UBIDECARENONE
     Dosage: UNK
  7. ATENOLOL. [Concomitant]
     Active Substance: ATENOLOL
     Indication: HYPERTENSION
     Dosage: 50 MG, 1X/DAY
  8. HUMULIN R [Concomitant]
     Active Substance: INSULIN HUMAN
     Dosage: UNK
  9. IBRANCE [Suspect]
     Active Substance: PALBOCICLIB
     Dosage: 125 MG, 1 CAPSULE EVERY DAY (ONCE A DAY) FOR 21 DAYS ON THEN TAKE 7 DAYS OFF AND REPEAT EVERY 4 WEEK
     Route: 048
     Dates: start: 20160623, end: 20170116
  10. GABAPENTIN. [Concomitant]
     Active Substance: GABAPENTIN
     Dosage: UNK
  11. LISINOPRIL. [Concomitant]
     Active Substance: LISINOPRIL
     Indication: HYPERTENSION
     Dosage: 2.5 MG, 1X/DAY
  12. TEMAZEPAM. [Concomitant]
     Active Substance: TEMAZEPAM
     Indication: INSOMNIA
     Dosage: 30 MG, 1X/DAY
  13. IBRANCE [Suspect]
     Active Substance: PALBOCICLIB
     Indication: BREAST CANCER FEMALE
     Dosage: 125 MG, CYCLIC(TAKE 1 CAPSULE BY MOUTH FOR 21 DAYS THEN TAKE 7 DAYS OFF, AND REPEAT EVERY 4 WEEKS)
     Route: 048
     Dates: start: 20160621
  14. IBRANCE [Suspect]
     Active Substance: PALBOCICLIB
     Dosage: 125 MG, CYCLIC (DAILY FOR 21 DAYS ON AND 7 DAYS OFF.)
     Route: 048
     Dates: start: 20160623, end: 20170220
  15. IBRANCE [Suspect]
     Active Substance: PALBOCICLIB
     Dosage: 125 MG, CYCLIC (DAILY FOR 21 DAYS ON AND 7 DAYS OFF.)
     Route: 048
     Dates: start: 20160623, end: 20170222
  16. FASLODEX [Concomitant]
     Active Substance: FULVESTRANT
     Dosage: UNK
  17. PROBIOTIC [Concomitant]
     Active Substance: PROBIOTICS NOS
     Dosage: UNK

REACTIONS (19)
  - Neuropathy peripheral [Unknown]
  - White blood cell count decreased [Unknown]
  - Diarrhoea [Unknown]
  - Bronchial disorder [Unknown]
  - Vomiting [Not Recovered/Not Resolved]
  - Sepsis [Not Recovered/Not Resolved]
  - Pyelonephritis [Unknown]
  - Back pain [Unknown]
  - Blister [Unknown]
  - Stomatitis [Unknown]
  - Insomnia [Unknown]
  - Neoplasm progression [Unknown]
  - Obstructive uropathy [Unknown]
  - Condition aggravated [Unknown]
  - Urinary tract infection [Unknown]
  - Decreased appetite [Not Recovered/Not Resolved]
  - Feeding disorder [Unknown]
  - Cough [Unknown]
  - Nausea [Not Recovered/Not Resolved]

NARRATIVE: CASE EVENT DATE: 201606
